FAERS Safety Report 12411376 (Version 1)
Quarter: 2016Q2

REPORT INFORMATION
  Report Type: Spontaneous
  Country: US (occurrence: None)
  Receive Date: 20160526
  Receipt Date: 20160526
  Transmission Date: 20160815
  Serious: Yes (Disabling)
  Sender: FDA-Public Use
  Company Number: None

PATIENT
  Age: 17 Year
  Sex: Female
  Weight: 54.43 kg

DRUGS (4)
  1. VITAMIN D [Concomitant]
     Active Substance: CHOLECALCIFEROL
  2. REMICADE [Suspect]
     Active Substance: INFLIXIMAB
     Indication: CROHN^S DISEASE
     Dosage: INFUSION ONCE EVERY SIX WEEKS I.V.5MG/KG
     Route: 042
     Dates: start: 201411, end: 20160207
  3. METHOTREXATE [Concomitant]
     Active Substance: METHOTREXATE
  4. VITAMIN B COMPLEX [Concomitant]
     Active Substance: CYANOCOBALAMIN\DEXPANTHENOL\NIACINAMIDE\PYRIDOXINE HYDROCHLORIDE\RIBOFLAVIN 5^-PHOSPHATE SODIUM\THIAMINE HYDROCHLORIDE\VITAMIN B COMPLEX

REACTIONS (5)
  - Weight decreased [None]
  - Lymphadenopathy [None]
  - Blood immunoglobulin E increased [None]
  - Alopecia totalis [None]
  - Pyrexia [None]

NARRATIVE: CASE EVENT DATE: 20160207
